FAERS Safety Report 15145841 (Version 2)
Quarter: 2018Q3

REPORT INFORMATION
  Report Type: Spontaneous
  Country: CO (occurrence: CO)
  Receive Date: 20180714
  Receipt Date: 20180821
  Transmission Date: 20181010
  Serious: Yes (Hospitalization, Other)
  Sender: FDA-Public Use
  Company Number: CO-AMGEN-COLSP2018095118

PATIENT
  Age: 70 Year
  Sex: Female

DRUGS (1)
  1. ENBREL [Suspect]
     Active Substance: ETANERCEPT
     Indication: RHEUMATOID ARTHRITIS
     Dosage: 50 MG, QWK
     Route: 058

REACTIONS (6)
  - Viral infection [Unknown]
  - Back pain [Unknown]
  - Abdominal distension [Recovering/Resolving]
  - Dyspnoea [Unknown]
  - Hepatic cirrhosis [Unknown]
  - Fluid retention [Unknown]

NARRATIVE: CASE EVENT DATE: 201806
